FAERS Safety Report 4403408-3 (Version None)
Quarter: 2004Q3

REPORT INFORMATION
  Report Type: 
  Country: None (occurrence: None)
  Receive Date: 20040719
  Receipt Date: 20040701
  Transmission Date: 20050211
  Serious: Yes (Hospitalization)
  Sender: FDA-Public Use
  Company Number: 199221

PATIENT
  Age: 51 Year
  Sex: Female
  Weight: 81.6475 kg

DRUGS (25)
  1. AVONEX [Suspect]
     Indication: MULTIPLE SCLEROSIS
     Dosage: 30 MCG QW IM
     Route: 030
     Dates: start: 19971015
  2. AVONEX [Suspect]
     Indication: MULTIPLE SCLEROSIS
     Dosage: 30 MCG QW IM
     Route: 030
  3. PLETAL [Concomitant]
  4. VERAPAMIL [Concomitant]
  5. LISINOPRIL [Concomitant]
  6. HYDROCHLOROTHIAZIDE [Concomitant]
  7. AMANTADINE HCL [Concomitant]
  8. METFORMIN HCL [Concomitant]
  9. VITAMIN E [Concomitant]
  10. VITAMIN C [Concomitant]
  11. RANITIDINE [Concomitant]
  12. IMDUR [Concomitant]
  13. ALBUTEROL [Concomitant]
  14. NITROGLYCERIN ^DAK^ [Concomitant]
  15. PLAVIX [Concomitant]
  16. WELCHOL [Concomitant]
  17. TOPROL-XL [Concomitant]
  18. BEXTRA [Concomitant]
  19. ASPIRIN [Concomitant]
  20. MULTI-VITAMINS [Concomitant]
  21. IBUPROFEN [Concomitant]
  22. VENTOLIN [Concomitant]
  23. ADVAIR DISKUS 100/50 [Concomitant]
  24. ZESTRIL [Concomitant]
  25. GLUCOPHAGE ^UNS^ [Concomitant]

REACTIONS (17)
  - AORTIC ANEURYSM [None]
  - AORTIC ATHEROSCLEROSIS [None]
  - AORTIC VALVE INCOMPETENCE [None]
  - AORTIC VALVE SCLEROSIS [None]
  - BLOOD CHOLESTEROL INCREASED [None]
  - BLOOD TRIGLYCERIDES INCREASED [None]
  - CONGENITAL ATRIAL SEPTAL DEFECT [None]
  - CORONARY ARTERIAL STENT INSERTION [None]
  - ELECTROCARDIOGRAM ST SEGMENT DEPRESSION [None]
  - ELECTROCARDIOGRAM T WAVE AMPLITUDE DECREASED [None]
  - LIVEDO RETICULARIS [None]
  - LOW DENSITY LIPOPROTEIN INCREASED [None]
  - MITRAL VALVE INCOMPETENCE [None]
  - PERIPHERAL EMBOLISM [None]
  - POST PROCEDURAL COMPLICATION [None]
  - SINUS TACHYCARDIA [None]
  - VENTRICULAR HYPERTROPHY [None]
